FAERS Safety Report 24546559 (Version 1)
Quarter: 2024Q4

REPORT INFORMATION
  Report Type: Spontaneous
  Country: TW (occurrence: TW)
  Receive Date: 20241024
  Receipt Date: 20241024
  Transmission Date: 20250114
  Serious: Yes (Other)
  Sender: MYLAN
  Company Number: TW-MYLANLABS-2024M1095960

PATIENT
  Sex: Male

DRUGS (1)
  1. XANAX [Suspect]
     Active Substance: ALPRAZOLAM
     Indication: Product used for unknown indication
     Dosage: 1 DOSAGE FORM (3-4 TIMES A DAY)
     Route: 048

REACTIONS (4)
  - Drug dependence [Unknown]
  - Muscle tightness [Unknown]
  - Anxiety [Unknown]
  - Drug withdrawal syndrome [Unknown]
